FAERS Safety Report 11799644 (Version 1)
Quarter: 2015Q4

REPORT INFORMATION
  Report Type: Spontaneous
  Country: CH (occurrence: CH)
  Receive Date: 20151203
  Receipt Date: 20151203
  Transmission Date: 20160305
  Serious: Yes (Death, Hospitalization)
  Sender: FDA-Public Use
  Company Number: CH-PFIZER INC-2015413307

PATIENT
  Age: 83 Year
  Sex: Male
  Weight: 78 kg

DRUGS (4)
  1. CELEBREX [Suspect]
     Active Substance: CELECOXIB
     Dosage: 200 MG, 2X/DAY
     Route: 048
     Dates: start: 201505, end: 20150731
  2. CLEXANE [Suspect]
     Active Substance: ENOXAPARIN SODIUM
     Dosage: 80 MG, 1X/DAY
     Route: 058
     Dates: start: 201507, end: 20150807
  3. TORASEMID SANDOZ ECO [Concomitant]
     Dosage: 5 MG, 1X/DAY
     Route: 048
  4. VOTUM [Concomitant]
     Active Substance: OLMESARTAN MEDOXOMIL
     Dosage: 10 MG, 1X/DAY
     Route: 048

REACTIONS (8)
  - Haematemesis [Recovering/Resolving]
  - Melaena [Recovered/Resolved]
  - Septic shock [Fatal]
  - Anaemia [Recovering/Resolving]
  - Haemodynamic instability [Recovering/Resolving]
  - Duodenal ulcer [Recovering/Resolving]
  - Hypovolaemia [Recovering/Resolving]
  - Gastrointestinal haemorrhage [Recovering/Resolving]

NARRATIVE: CASE EVENT DATE: 20150730
